FAERS Safety Report 24980352 (Version 1)
Quarter: 2025Q1

REPORT INFORMATION
  Report Type: Report from Study
  Country: DE (occurrence: DE)
  Receive Date: 20250218
  Receipt Date: 20250218
  Transmission Date: 20250409
  Serious: No
  Sender: ROCHE
  Company Number: DE-ML42393-1054-002-5_0

PATIENT
  Age: 28 Year
  Sex: Female

DRUGS (26)
  1. OCRELIZUMAB [Suspect]
     Active Substance: OCRELIZUMAB
     Indication: Relapsing multiple sclerosis
     Route: 040
     Dates: start: 20231124
  2. OCRELIZUMAB [Suspect]
     Active Substance: OCRELIZUMAB
     Route: 040
     Dates: start: 20240705
  3. CHOLECALCIFEROL [Concomitant]
     Active Substance: CHOLECALCIFEROL
     Indication: Vitamin D deficiency
     Dosage: DOSE: 20000?DOSE FREQUENCY: QS (EVERY WEEK)
     Route: 048
     Dates: start: 202207
  4. CORTISONE [Concomitant]
     Active Substance: CORTISONE
     Dosage: DOSE: 1?DOSE FREQUENCY: QD (EVERY DAY)
     Route: 040
     Dates: start: 20231101, end: 20231108
  5. POLYETHYLENE GLYCOLS [Concomitant]
     Active Substance: POLYETHYLENE GLYCOLS
     Indication: Constipation
     Route: 048
     Dates: start: 20231106
  6. FOSFOMYCIN [Concomitant]
     Active Substance: FOSFOMYCIN
     Indication: Cystitis
     Route: 048
     Dates: start: 20240628, end: 20240628
  7. SULFAMETHOXAZOLE\TRIMETHOPRIM [Concomitant]
     Active Substance: SULFAMETHOXAZOLE\TRIMETHOPRIM
     Indication: Cystitis
     Dosage: DOSE: 960?DOSE FREQUENCY: BID (TWICE A DAY)
     Route: 048
     Dates: start: 20240705, end: 20240710
  8. IBUPROFEN [Concomitant]
     Active Substance: IBUPROFEN
     Route: 048
     Dates: start: 20250106, end: 20250118
  9. BENZOCAINE [Concomitant]
     Active Substance: BENZOCAINE
     Route: 048
     Dates: start: 20250106, end: 20250118
  10. BACLOFEN [Concomitant]
     Active Substance: BACLOFEN
     Dosage: DOSE: 5?DOSE FREQUENCY: QD (EVERY DAY)
     Route: 048
     Dates: start: 20231220, end: 20240110
  11. TIZANIDINE HYDROCHLORIDE [Concomitant]
     Active Substance: TIZANIDINE HYDROCHLORIDE
     Dosage: DOSE: 2?DOSE FREQUENCY: BID (TWICE A DAY)
     Route: 048
     Dates: start: 20240111, end: 202402
  12. BOTULINUM TOXIN NOS [Concomitant]
     Active Substance: BOTULINUM TOXIN NOS
     Route: 030
     Dates: start: 20240424, end: 20240826
  13. METHYLPREDNISOLONE [Concomitant]
     Active Substance: METHYLPREDNISOLONE
     Dosage: DOSE: 1?DOSE FREQUENCY: QD (EVERY DAY)
     Route: 040
     Dates: start: 20240812, end: 20240814
  14. ENOXAPARIN [Concomitant]
     Active Substance: ENOXAPARIN
     Indication: Prophylaxis
     Dosage: DOSE: 40?DOSE FREQUENCY: QD (EVERY DAY)
     Route: 058
     Dates: start: 20240812, end: 20240814
  15. PANTOPRAZOLE [Concomitant]
     Active Substance: PANTOPRAZOLE
     Dosage: DOSE: 40?DOSE FREQUENCY: QD (EVERY DAY)
     Route: 048
     Dates: start: 20240812, end: 20240814
  16. DALFAMPRIDINE [Concomitant]
     Active Substance: DALFAMPRIDINE
     Dosage: DOSE: 10?DOSE FREQUENCY: BID (TWICE A DAY)
     Route: 048
     Dates: start: 20240424
  17. PREDNISOLONE [Concomitant]
     Active Substance: PREDNISOLONE
     Route: 040
     Dates: start: 20231124, end: 20231124
  18. PREDNISOLONE [Concomitant]
     Active Substance: PREDNISOLONE
     Route: 040
     Dates: start: 20240705, end: 20240705
  19. DIMETHINDENE MALEATE [Concomitant]
     Active Substance: DIMETHINDENE MALEATE
     Route: 040
     Dates: start: 20231124, end: 20231124
  20. DIMETHINDENE MALEATE [Concomitant]
     Active Substance: DIMETHINDENE MALEATE
     Route: 040
     Dates: start: 20240705, end: 20240705
  21. ACETAMINOPHEN [Concomitant]
     Active Substance: ACETAMINOPHEN
     Dosage: DOSE FREQUENCY: ONCE
     Route: 040
     Dates: start: 20231124, end: 20231124
  22. ACETAMINOPHEN [Concomitant]
     Active Substance: ACETAMINOPHEN
     Dosage: DOSE FREQUENCY: ONCE
     Route: 040
     Dates: start: 20231211, end: 20231211
  23. ACETAMINOPHEN [Concomitant]
     Active Substance: ACETAMINOPHEN
     Dosage: DOSE FREQUENCY: ONCE
     Route: 040
     Dates: start: 20240705, end: 20240705
  24. ACETAMINOPHEN [Concomitant]
     Active Substance: ACETAMINOPHEN
     Dosage: DOSE FREQUENCY: ONCE
     Route: 040
     Dates: start: 20250213, end: 20250213
  25. PREDNISOLONE [Concomitant]
     Active Substance: PREDNISOLONE
     Route: 040
     Dates: start: 20231211, end: 20231211
  26. METHYLPREDNISOLONE [Concomitant]
     Active Substance: METHYLPREDNISOLONE
     Dosage: DOSE FREQUENCY: ONCE
     Route: 040
     Dates: start: 20250213, end: 20250213

REACTIONS (1)
  - COVID-19 [Recovered/Resolved]

NARRATIVE: CASE EVENT DATE: 20240901
